FAERS Safety Report 9553142 (Version 1)
Quarter: 2013Q2

REPORT INFORMATION
  Report Type: Spontaneous
  Country: US (occurrence: None)
  Receive Date: 20130606
  Receipt Date: 20130606
  Transmission Date: 20140414
  Serious: Yes (Other)
  Sender: FDA-Public Use
  Company Number: 2013PROUSA02733

PATIENT
  Age: 80 Year
  Sex: Male
  Weight: 75.7 kg

DRUGS (6)
  1. PROVENGE [Suspect]
     Indication: PROSTATE CANCER METASTATIC
     Route: 042
     Dates: start: 20130325, end: 20130325
  2. CASODEX (BICALUTAMIDE) [Concomitant]
  3. ZOCOR (SIMVASTATIN) [Concomitant]
  4. PRILOSEC (OMEPRAZOLE MAGNESIUM) [Concomitant]
  5. LUPRON (LEUPRORELIN ACETATE) [Concomitant]
  6. FENTANYL 1 A PHARMA [Concomitant]

REACTIONS (3)
  - Device alarm issue [None]
  - Nausea [None]
  - Vomiting [None]
